FAERS Safety Report 4289112-3 (Version None)
Quarter: 2004Q1

REPORT INFORMATION
  Report Type: 
  Country: None (occurrence: None)
  Receive Date: 20040209
  Receipt Date: 20040209
  Transmission Date: 20041129
  Serious: Yes (Death)
  Sender: FDA-Public Use
  Company Number: None

PATIENT
  Age: 57 Year
  Sex: Male

DRUGS (7)
  1. RITUXAN [Suspect]
     Indication: CHRONIC LYMPHOCYTIC LEUKAEMIA
     Dosage: 600 MG EVERY 3 WE IV
     Route: 042
     Dates: start: 20030415, end: 20030815
  2. CYTOXAN [Concomitant]
  3. PENTOSTATIN [Concomitant]
  4. BACTRIM [Concomitant]
  5. ACYCLOVIR [Concomitant]
  6. AMARYL [Concomitant]
  7. GLUCOPHAGE [Concomitant]

REACTIONS (5)
  - DISEASE RECURRENCE [None]
  - HEPATIC FAILURE [None]
  - HEPATITIS ACUTE [None]
  - HEPATITIS B [None]
  - IMMUNOSUPPRESSION [None]
